FAERS Safety Report 5780463-X (Version None)
Quarter: 2008Q2

REPORT INFORMATION
  Report Type: 
  Country: None (occurrence: None)
  Receive Date: 20080620
  Receipt Date: 20080610
  Transmission Date: 20081010
  Serious: Yes (Death, Other)
  Sender: FDA-Public Use
  Company Number: JP-ABBOTT-08P-087-0454747-00

PATIENT
  Age: 85 Year
  Sex: Male
  Weight: 55 kg

DRUGS (7)
  1. LEUPROLIDE ACETATE [Suspect]
     Indication: PROSTATE CANCER STAGE III
     Route: 058
     Dates: start: 20070228, end: 20071109
  2. LEUPROLIDE ACETATE [Suspect]
     Dates: end: 20070131
  3. BICALUTAMIDE [Concomitant]
     Indication: PROSTATE CANCER STAGE III
     Route: 048
     Dates: start: 20071109, end: 20080124
  4. DISTIGMINE BROMIDE [Concomitant]
     Indication: NEUROGENIC BLADDER
     Route: 048
     Dates: start: 20071025, end: 20080124
  5. TAMSULOSIN HCL [Concomitant]
     Indication: BENIGN PROSTATIC HYPERPLASIA
     Route: 048
     Dates: start: 20071025, end: 20071108
  6. URSODIOL [Concomitant]
     Indication: PROPHYLAXIS
     Route: 048
     Dates: start: 20071109, end: 20080124
  7. URSODIOL [Concomitant]
     Indication: HEPATIC FUNCTION ABNORMAL

REACTIONS (3)
  - AORTIC DISSECTION RUPTURE [None]
  - CARDIO-RESPIRATORY ARREST [None]
  - PYREXIA [None]
